FAERS Safety Report 4527056-X (Version None)
Quarter: 2004Q4

REPORT INFORMATION
  Report Type: 
  Country: None (occurrence: None)
  Receive Date: 20041213
  Receipt Date: 20041130
  Transmission Date: 20050328
  Serious: No
  Sender: FDA-Public Use
  Company Number: 04H-062-0282494-00

PATIENT

DRUGS (2)
  1. DOBUTAMINE HCL [Suspect]
     Indication: CARDIAC DISORDER
     Dosage: SEE IMAGE
     Route: 042
  2. SODIUM CHLORIDE [Concomitant]

REACTIONS (1)
  - VENTRICULAR TACHYCARDIA [None]
